FAERS Safety Report 9819533 (Version 1)
Quarter: 2014Q1

REPORT INFORMATION
  Report Type: Spontaneous
  Country: US (occurrence: None)
  Receive Date: 20140113
  Receipt Date: 20140113
  Transmission Date: 20141002
  Serious: Yes (Other)
  Sender: FDA-Public Use
  Company Number: C-13-108

PATIENT
  Sex: Female

DRUGS (1)
  1. INDOMETHACIN [Suspect]

REACTIONS (5)
  - Nausea [None]
  - Haematemesis [None]
  - Abdominal pain upper [None]
  - Dizziness [None]
  - Influenza [None]
